FAERS Safety Report 10262320 (Version 1)
Quarter: 2014Q2

REPORT INFORMATION
  Report Type: Spontaneous
  Country: US (occurrence: None)
  Receive Date: 20140624
  Receipt Date: 20140624
  Transmission Date: 20141212
  Serious: Yes (Other)
  Sender: FDA-Public Use
  Company Number: None

PATIENT
  Age: 89 Year
  Sex: Female
  Weight: 58.51 kg

DRUGS (13)
  1. IORAZEPAM 1MG [Suspect]
     Dosage: 3 DAY LATER, 1 MG TABLET, 1 PILL, BEDTIME, BY MOUTH
     Route: 048
     Dates: start: 201404
  2. NEXIUN [Concomitant]
  3. MYSOLINE [Concomitant]
  4. ZESTOIL [Concomitant]
  5. GLUCOPHAGE XR [Concomitant]
  6. JANUVIA [Concomitant]
  7. SINGULAIR [Concomitant]
  8. ATIVAN [Concomitant]
  9. ARICEPT [Concomitant]
  10. B 12 [Concomitant]
  11. ZYRTEC [Concomitant]
  12. PROBIOTIC 10 [Concomitant]
  13. CENTIUM SILVER [Concomitant]

REACTIONS (3)
  - Swollen tongue [None]
  - Hypersensitivity [None]
  - Product quality issue [None]
